FAERS Safety Report 10020830 (Version 1)
Quarter: 2013Q4

REPORT INFORMATION
  Report Type: Spontaneous
  Country: US (occurrence: None)
  Receive Date: 20131203
  Receipt Date: 20131203
  Transmission Date: 20140711
  Serious: Yes (Death, Hospitalization)
  Sender: FDA-Public Use
  Company Number: 2013SA117159

PATIENT
  Age: 76 Year
  Sex: Male

DRUGS (1)
  1. FABRAZYME [Suspect]
     Indication: FABRY^S DISEASE
     Route: 042
     Dates: end: 20131123

REACTIONS (3)
  - Muscular weakness [None]
  - Cerebrovascular accident [None]
  - Cerebral haemorrhage [None]
